FAERS Safety Report 6971091-9 (Version None)
Quarter: 2010Q3

REPORT INFORMATION
  Report Type: 
  Country: None (occurrence: None)
  Receive Date: 20100908
  Receipt Date: 20100830
  Transmission Date: 20110219
  Serious: Yes (Hospitalization)
  Sender: FDA-Public Use
  Company Number: DE-JNJFOC-20100900517

PATIENT
  Age: 5 Year
  Sex: Female
  Weight: 15.3 kg

DRUGS (8)
  1. REMICADE [Suspect]
     Indication: CROHN'S DISEASE
     Route: 042
  2. REMICADE [Suspect]
     Dosage: 2ND INFUSION
     Route: 042
  3. REMICADE [Suspect]
     Indication: COLITIS ULCERATIVE
     Dosage: 2ND INFUSION
     Route: 042
  4. REMICADE [Suspect]
     Route: 042
  5. HYDROCORTISON [Concomitant]
     Indication: COLITIS ULCERATIVE
  6. CYCLOSPORINE [Concomitant]
     Indication: COLITIS ULCERATIVE
  7. MESALAZINE [Concomitant]
  8. ENALAPRIL MALEATE [Concomitant]
     Indication: HYPERTENSION

REACTIONS (4)
  - AGITATION [None]
  - DYSPNOEA [None]
  - INFUSION RELATED REACTION [None]
  - OXYGEN SATURATION DECREASED [None]
